FAERS Safety Report 8302071-9 (Version None)
Quarter: 2012Q2

REPORT INFORMATION
  Report Type: 
  Country: None (occurrence: None)
  Receive Date: 20120420
  Receipt Date: 20120410
  Transmission Date: 20120825
  Serious: Yes (Hospitalization, Disabling, Other)
  Sender: FDA-Public Use
  Company Number: US-MERCK-1201USA00239

PATIENT
  Age: 59 Year
  Sex: Female
  Weight: 58 kg

DRUGS (8)
  1. VITAMIN B COMPLEX [Concomitant]
     Route: 065
  2. FOSAMAX [Suspect]
     Indication: OSTEOPENIA
     Route: 048
     Dates: start: 19980301, end: 20070712
  3. OMEGA-3 MARINE TRIGLYCERIDES [Concomitant]
     Route: 065
  4. FOSAMAX [Suspect]
     Indication: OSTEOPOROSIS
     Route: 048
     Dates: start: 19980301, end: 20070712
  5. FOSAMAX [Suspect]
     Route: 048
     Dates: start: 20050301
  6. CALCIUM (UNSPECIFIED) [Concomitant]
     Route: 065
  7. FOSAMAX [Suspect]
     Route: 048
     Dates: start: 20050301
  8. HORMONES (UNSPECIFIED) [Concomitant]
     Route: 065

REACTIONS (55)
  - FEMUR FRACTURE [None]
  - ADVERSE DRUG REACTION [None]
  - CYSTOCELE [None]
  - NOCTURIA [None]
  - TOOTH DISORDER [None]
  - STRESS FRACTURE [None]
  - ARTHRALGIA [None]
  - MUSCULOSKELETAL DISCOMFORT [None]
  - BREAST CALCIFICATIONS [None]
  - OEDEMA PERIPHERAL [None]
  - VERTIGO [None]
  - INTERVERTEBRAL DISC DEGENERATION [None]
  - ANAEMIA [None]
  - VARICOSE VEIN [None]
  - UTERINE CERVIX ATROPHY [None]
  - TYPE 2 DIABETES MELLITUS [None]
  - DYSPNOEA [None]
  - SPINAL COMPRESSION FRACTURE [None]
  - GINGIVAL PAIN [None]
  - GINGIVAL DISORDER [None]
  - PERINEURIAL CYST [None]
  - HYPERLIPIDAEMIA [None]
  - HEPATITIS E ANTIBODY POSITIVE [None]
  - ANXIETY DISORDER [None]
  - RENAL FAILURE CHRONIC [None]
  - LOW TURNOVER OSTEOPATHY [None]
  - NEURALGIA [None]
  - MYALGIA [None]
  - MUSCLE FATIGUE [None]
  - NAUSEA [None]
  - MUSCLE INJURY [None]
  - JOINT DISLOCATION [None]
  - URINARY TRACT INFECTION [None]
  - SENSITIVITY OF TEETH [None]
  - CONSTIPATION [None]
  - CATARACT [None]
  - ANXIETY [None]
  - WEIGHT INCREASED [None]
  - VOMITING [None]
  - ABDOMINAL PAIN UPPER [None]
  - CERVICAL DYSPLASIA [None]
  - DEPRESSION [None]
  - NEUROPATHY PERIPHERAL [None]
  - URGE INCONTINENCE [None]
  - PAIN IN EXTREMITY [None]
  - RENAL DISORDER [None]
  - DYSPEPSIA [None]
  - WEIGHT DECREASED [None]
  - FATIGUE [None]
  - CARDIAC MURMUR [None]
  - BACK PAIN [None]
  - JOINT EFFUSION [None]
  - DRY EYE [None]
  - PANIC ATTACK [None]
  - HYPERTENSION [None]
